FAERS Safety Report 7948779-6 (Version None)
Quarter: 2011Q4

REPORT INFORMATION
  Report Type: 
  Country: None (occurrence: None)
  Receive Date: 20111130
  Receipt Date: 20111123
  Transmission Date: 20120403
  Serious: Yes (Other)
  Sender: FDA-Public Use
  Company Number: US-JNJFOC-20111100251

PATIENT
  Sex: Female

DRUGS (2)
  1. AMPICILLIN [Concomitant]
     Indication: ANTIBIOTIC PROPHYLAXIS
     Route: 065
     Dates: start: 20110101, end: 20110101
  2. NUCYNTA [Suspect]
     Indication: PROCEDURAL PAIN
     Dosage: ONE EVERY 6 HOURS
     Route: 048
     Dates: start: 20110101, end: 20110101

REACTIONS (1)
  - ANAPHYLACTIC REACTION [None]
